FAERS Safety Report 9251795 (Version 1)
Quarter: 2013Q2

REPORT INFORMATION
  Report Type: Spontaneous
  Country: US (occurrence: US)
  Receive Date: 20130424
  Receipt Date: 20130424
  Transmission Date: 20140414
  Serious: Yes (Other)
  Sender: FDA-Public Use
  Company Number: US-PFIZER INC-2013128175

PATIENT
  Sex: Female

DRUGS (3)
  1. MS CONTIN [Suspect]
     Route: 048
  2. MORPHINE SULFATE [Suspect]
     Route: 048
  3. HEROIN [Suspect]

REACTIONS (1)
  - Substance abuse [Unknown]
